FAERS Safety Report 8334313-8 (Version None)
Quarter: 2012Q1

REPORT INFORMATION
  Report Type: 
  Country: None (occurrence: None)
  Receive Date: 20120328
  Receipt Date: 20100524
  Transmission Date: 20120608
  Serious: Yes (Other)
  Sender: FDA-Public Use
  Company Number: PHHY2010US33965

PATIENT
  Age: 88 Year
  Sex: Female

DRUGS (2)
  1. EXELON [Suspect]
     Dosage: 4.6 MG, PATCH, TRANSDERMAL
     Route: 062
  2. ARICEPT [Suspect]

REACTIONS (6)
  - PNEUMONIA [None]
  - INSOMNIA [None]
  - APPLICATION SITE ERYTHEMA [None]
  - DECREASED APPETITE [None]
  - FATIGUE [None]
  - APPLICATION SITE PRURITUS [None]
